FAERS Safety Report 25332059 (Version 1)
Quarter: 2025Q2

REPORT INFORMATION
  Report Type: Spontaneous
  Country: US (occurrence: US)
  Receive Date: 20250519
  Receipt Date: 20250519
  Transmission Date: 20250717
  Serious: No
  Sender: TAKEDA
  Company Number: US-TAKEDA-2025TUS046619

PATIENT
  Age: 18 Year
  Sex: Female

DRUGS (1)
  1. EOHILIA [Suspect]
     Active Substance: BUDESONIDE
     Indication: Eosinophilic oesophagitis
     Dosage: UNK UNK, QD
     Dates: start: 202501

REACTIONS (3)
  - Pruritus [Unknown]
  - Oropharyngeal discomfort [Unknown]
  - Dyspepsia [Unknown]
